FAERS Safety Report 6790545-1 (Version None)
Quarter: 2010Q2

REPORT INFORMATION
  Report Type: 
  Country: None (occurrence: None)
  Receive Date: 20100520
  Receipt Date: 20090618
  Transmission Date: 20101027
  Serious: Yes (Other)
  Sender: FDA-Public Use
  Company Number: 2009229090

PATIENT
  Age: 53 Year
  Sex: Female
  Weight: 76 kg

DRUGS (8)
  1. PROVERA [Suspect]
     Indication: HORMONE REPLACEMENT THERAPY
     Dosage: ORAL
     Route: 048
     Dates: start: 19930805, end: 19950101
  2. PREMARIN [Suspect]
     Indication: HORMONE REPLACEMENT THERAPY
     Dates: start: 19930805, end: 19950825
  3. PREMPRO [Suspect]
     Indication: HORMONE REPLACEMENT THERAPY
     Dates: start: 19950825, end: 20020131
  4. ZESTORETIC [Concomitant]
  5. MINOCYCLINE HCL [Concomitant]
  6. HYDROCODONE BITARTRATE + ACETAMINOPHEN [Concomitant]
  7. CLOBETASOL (CLOBETASOL) [Concomitant]
  8. QUININE (QUININE) [Concomitant]

REACTIONS (1)
  - BREAST CANCER [None]
